FAERS Safety Report 8960755 (Version 2)
Quarter: 2013Q1

REPORT INFORMATION
  Report Type: Spontaneous
  Country: GB (occurrence: GB)
  Receive Date: 20121213
  Receipt Date: 20130119
  Transmission Date: 20140127
  Serious: Yes (Hospitalization)
  Sender: FDA-Public Use
  Company Number: GB-009507513-1212GBR000752

PATIENT
  Age: 27 Year
  Sex: Female

DRUGS (1)
  1. DEXAMETHASONE [Suspect]
     Dosage: 4 MG, Q6H
     Route: 042

REACTIONS (2)
  - Herpes zoster [Unknown]
  - Drug ineffective [Unknown]
